FAERS Safety Report 20168633 (Version 1)
Quarter: 2021Q4

REPORT INFORMATION
  Report Type: Spontaneous
  Country: US (occurrence: US)
  Receive Date: 20211210
  Receipt Date: 20211210
  Transmission Date: 20220304
  Serious: No
  Sender: FDA-Public Use
  Company Number: ENDG21-01803

PATIENT
  Sex: Female

DRUGS (1)
  1. IMIPRAMINE HYDROCHLORIDE [Suspect]
     Active Substance: IMIPRAMINE HYDROCHLORIDE
     Indication: Migraine
     Dosage: UNK UNKNOWN, UNK
     Route: 065

REACTIONS (4)
  - Illness [Unknown]
  - Drug ineffective for unapproved indication [Unknown]
  - Off label use [Not Recovered/Not Resolved]
  - Product substitution issue [Unknown]
